FAERS Safety Report 7609003-7 (Version None)
Quarter: 2011Q3

REPORT INFORMATION
  Report Type: 
  Country: None (occurrence: None)
  Receive Date: 20110714
  Receipt Date: 20110707
  Transmission Date: 20111222
  Serious: Yes (Other)
  Sender: FDA-Public Use
  Company Number: FR-B.I. PHARMACEUTICALS,INC./RIDGEFIELD-2011-FF-00670FF

PATIENT
  Sex: Female

DRUGS (3)
  1. VIRAMUNE [Suspect]
  2. EPIVIR [Concomitant]
  3. ZIAGEN [Concomitant]

REACTIONS (2)
  - APHAGIA [None]
  - OESOPHAGEAL CARCINOMA [None]
